FAERS Safety Report 8963386 (Version 1)
Quarter: 2012Q4

REPORT INFORMATION
  Report Type: 
  Country: BE (occurrence: BE)
  Receive Date: 20121214
  Receipt Date: 20121214
  Transmission Date: 20130627
  Serious: Yes (Hospitalization)
  Sender: FDA-Public Use
  Company Number: BE-PFIZER INC-2012313889

PATIENT
  Age: 73 Year
  Sex: Male
  Weight: 81 kg

DRUGS (13)
  1. GENOTROPIN [Suspect]
     Indication: PANHYPOPITUITARISM
     Dosage: 0.2 mg, 1x/day,7 injection/ Week
     Route: 058
     Dates: start: 20071105
  2. TESTOSTERONE [Concomitant]
     Indication: LUTEINIZING HORMONE DEFICIENCY
     Dosage: UNK
     Dates: start: 20071105
  3. TESTOSTERONE [Concomitant]
     Indication: FOLLICLE-STIMULATING HORMONE DEFICIENCY
  4. TESTOSTERONE [Concomitant]
     Indication: TESTICULAR HYPOGONADISM
  5. HYDROCORTISONE [Concomitant]
     Indication: ACTH DECREASED
     Dosage: UNK
     Dates: start: 20071105
  6. ASAFLOW [Concomitant]
     Dosage: UNK
     Dates: start: 20071105
  7. DILTIAZEM HYDROCHLORIDE [Concomitant]
     Dosage: UNK
     Dates: start: 20071105
  8. CITALOPRAM [Concomitant]
     Dosage: UNK
     Dates: start: 20071105
  9. CETIRIZINE [Concomitant]
     Dosage: UNK
     Dates: start: 20071105
  10. LORMETAZEPAM [Concomitant]
     Indication: EPILEPSY
     Dosage: UNK
     Dates: start: 20071105
  11. LORMETAZEPAM [Concomitant]
     Indication: CONVULSIONS
  12. LORMETAZEPAM [Concomitant]
     Indication: SEIZURE
  13. DESMOPRESSIN [Concomitant]
     Indication: ADH DECREASED
     Dosage: UNK
     Dates: start: 20091123

REACTIONS (1)
  - Gastrointestinal disorder [Unknown]
